FAERS Safety Report 7716339-8 (Version None)
Quarter: 2011Q3

REPORT INFORMATION
  Report Type: 
  Country: None (occurrence: None)
  Receive Date: 20110829
  Receipt Date: 20110819
  Transmission Date: 20111222
  Serious: Yes (Other)
  Sender: FDA-Public Use
  Company Number: PHFR2011IE02907

PATIENT
  Sex: Male

DRUGS (9)
  1. CLOZAPINE [Suspect]
     Indication: SCHIZOPHRENIA
     Route: 048
     Dates: start: 20070629
  2. CLOZAPINE [Suspect]
     Dosage: 575 MG/DAY
     Route: 048
     Dates: start: 20071201
  3. LITHIUM CARBONATE [Concomitant]
     Indication: AFFECTIVE DISORDER
     Dosage: 1000 MG/DAY
     Route: 048
  4. AMISULPRIDE [Suspect]
     Indication: MENTAL DISORDER
     Dosage: 300 MG/DAY
     Route: 048
  5. VALPROIC ACID [Concomitant]
     Dosage: 2000 MG/DAY
     Route: 048
  6. LAMOTRIGINE [Concomitant]
     Indication: AFFECTIVE DISORDER
     Dosage: 200 MG/DAY
     Route: 048
  7. CLOZAPINE [Suspect]
     Dosage: 550 MG/DAY
     Route: 048
  8. TENORMIN [Concomitant]
     Dosage: 50 MG/DAY
     Route: 048
  9. VALPROIC ACID [Concomitant]
     Indication: AFFECTIVE DISORDER
     Dosage: 1500 MG/DAY
     Route: 048

REACTIONS (2)
  - ENURESIS [None]
  - CONVULSION [None]
